FAERS Safety Report 8173475-2 (Version None)
Quarter: 2012Q1

REPORT INFORMATION
  Report Type: 
  Country: None (occurrence: None)
  Receive Date: 20120223
  Receipt Date: 20120216
  Transmission Date: 20120608
  Serious: Yes (Death, Hospitalization)
  Sender: FDA-Public Use
  Company Number: WAES 1202USA02882

PATIENT
  Age: 63 Year
  Sex: Female

DRUGS (1)
  1. ZOLINZA [Suspect]
     Indication: MYCOSIS FUNGOIDES
     Dosage: 400 MG/DAILY, PO
     Route: 048
     Dates: start: 20111110, end: 20120118

REACTIONS (2)
  - PLEURAL EFFUSION [None]
  - INTERSTITIAL LUNG DISEASE [None]
